FAERS Safety Report 17308269 (Version 1)
Quarter: 2020Q1

REPORT INFORMATION
  Report Type: Spontaneous
  Country: US (occurrence: US)
  Receive Date: 20200123
  Receipt Date: 20200123
  Transmission Date: 20200409
  Serious: Yes (Disabling)
  Sender: FDA-Public Use
  Company Number: None

PATIENT
  Age: 79 Year
  Sex: Female
  Weight: 75.6 kg

DRUGS (4)
  1. IRON PILLS [Concomitant]
     Active Substance: IRON
  2. VITRON C [Concomitant]
     Active Substance: ASCORBIC ACID\IRON
  3. INJECTAFER [Suspect]
     Active Substance: FERRIC CARBOXYMALTOSE
     Indication: ANAEMIA
  4. ACIPHEX [Concomitant]
     Active Substance: RABEPRAZOLE SODIUM

REACTIONS (3)
  - Arthralgia [None]
  - Myalgia [None]
  - Gait inability [None]

NARRATIVE: CASE EVENT DATE: 20191213
